FAERS Safety Report 6363498-8 (Version None)
Quarter: 2009Q3

REPORT INFORMATION
  Report Type: 
  Country: None (occurrence: None)
  Receive Date: 20090919
  Receipt Date: 20090707
  Transmission Date: 20100115
  Serious: Yes (Hospitalization)
  Sender: FDA-Public Use
  Company Number: US-ABBOTT-09P-163-0582590-00

PATIENT
  Sex: Male
  Weight: 80.358 kg

DRUGS (3)
  1. HUMIRA [Suspect]
     Indication: PSORIATIC ARTHROPATHY
     Route: 058
     Dates: start: 20060101, end: 20081201
  2. HUMIRA [Suspect]
     Route: 058
     Dates: start: 20090627
  3. PREDNISONE [Suspect]
     Indication: DRUG USE FOR UNKNOWN INDICATION

REACTIONS (12)
  - CHEST PAIN [None]
  - CHOLELITHIASIS [None]
  - HEPATIC INFECTION [None]
  - HERPES ZOSTER [None]
  - INJURY [None]
  - NERVE INJURY [None]
  - PAIN IN EXTREMITY [None]
  - SEPSIS [None]
  - SKIN DISCOLOURATION [None]
  - STAPHYLOCOCCAL INFECTION [None]
  - STRESS [None]
  - VASCULAR RUPTURE [None]
